FAERS Safety Report 18736227 (Version 1)
Quarter: 2021Q1

REPORT INFORMATION
  Report Type: Spontaneous
  Country: BE (occurrence: BE)
  Receive Date: 20210113
  Receipt Date: 20210113
  Transmission Date: 20210419
  Serious: Yes (Hospitalization)
  Sender: FDA-Public Use
  Company Number: BE-CELGENEUS-BEL-20201003730

PATIENT
  Age: 72 Year
  Sex: Male
  Weight: 85 kg

DRUGS (35)
  1. LENALIDOMIDE [Suspect]
     Active Substance: LENALIDOMIDE
     Indication: DIFFUSE LARGE B-CELL LYMPHOMA
     Dosage: 25 MILLIGRAM
     Route: 048
     Dates: start: 20200116, end: 20200122
  2. TAFASITAMAB [Suspect]
     Active Substance: TAFASITAMAB
     Dosage: 12 MILLIGRAM/KILOGRAM
     Route: 041
     Dates: start: 20200130, end: 20200130
  3. ACYCLOVIR. [Concomitant]
     Active Substance: ACYCLOVIR
     Indication: PRODUCT USED FOR UNKNOWN INDICATION
     Route: 065
     Dates: start: 20200123
  4. LOSARTAN. [Concomitant]
     Active Substance: LOSARTAN
     Indication: PRODUCT USED FOR UNKNOWN INDICATION
     Route: 065
     Dates: start: 20200103
  5. LENALIDOMIDE [Suspect]
     Active Substance: LENALIDOMIDE
     Dosage: 20 MILLIGRAM
     Route: 048
     Dates: start: 20200303, end: 20200312
  6. TAFASITAMAB [Suspect]
     Active Substance: TAFASITAMAB
     Dosage: 12 MILLIGRAM/KILOGRAM
     Route: 041
     Dates: start: 20200310, end: 20200310
  7. AMLOR [Concomitant]
     Active Substance: AMLODIPINE BESYLATE
     Indication: PRODUCT USED FOR UNKNOWN INDICATION
     Route: 065
     Dates: start: 20200103
  8. LENALIDOMIDE [Suspect]
     Active Substance: LENALIDOMIDE
     Dosage: 20 MILLIGRAM
     Route: 048
     Dates: start: 20200211, end: 20200217
  9. LENALIDOMIDE [Suspect]
     Active Substance: LENALIDOMIDE
     Dosage: 20 MILLIGRAM
     Route: 048
     Dates: start: 20200421, end: 20200430
  10. TAFASITAMAB [Suspect]
     Active Substance: TAFASITAMAB
     Dosage: 12 MILLIGRAM/KILOGRAM
     Route: 041
     Dates: start: 20200331, end: 20200331
  11. TAFASITAMAB [Suspect]
     Active Substance: TAFASITAMAB
     Dosage: 12 MILLIGRAM/KILOGRAM
     Route: 041
     Dates: start: 20200421, end: 20200421
  12. DUOVENT [Concomitant]
     Active Substance: FENOTEROL HYDROBROMIDE
     Indication: PRODUCT USED FOR UNKNOWN INDICATION
     Route: 065
     Dates: start: 20200103
  13. TAFASITAMAB [Suspect]
     Active Substance: TAFASITAMAB
     Dosage: 12 MILLIGRAM/KILOGRAM
     Route: 041
     Dates: start: 20200211, end: 20200211
  14. TAFASITAMAB [Suspect]
     Active Substance: TAFASITAMAB
     Dosage: 12 MILLIGRAM/KILOGRAM
     Route: 041
     Dates: start: 20200324, end: 20200324
  15. DULCOLAX NOS [Concomitant]
     Active Substance: BISACODYL OR DOCUSATE SODIUM
     Indication: PRODUCT USED FOR UNKNOWN INDICATION
     Route: 065
     Dates: start: 20200122
  16. TAFASITAMAB [Suspect]
     Active Substance: TAFASITAMAB
     Dosage: 12 MILLIGRAM/KILOGRAM
     Route: 041
     Dates: start: 20200123, end: 20200123
  17. PANTOPRAZOLE [Concomitant]
     Active Substance: PANTOPRAZOLE
     Indication: PRODUCT USED FOR UNKNOWN INDICATION
     Route: 065
     Dates: start: 20200218
  18. LASIX [Concomitant]
     Active Substance: FUROSEMIDE
     Indication: PRODUCT USED FOR UNKNOWN INDICATION
     Route: 065
     Dates: start: 20200103
  19. R CHOP [Concomitant]
     Active Substance: CYCLOPHOSPHAMIDE\DOXORUBICIN\PREDNISONE\RITUXIMAB\VINCRISTINE
     Indication: DIFFUSE LARGE B-CELL LYMPHOMA
     Route: 065
  20. LENALIDOMIDE [Suspect]
     Active Substance: LENALIDOMIDE
     Dosage: 20 MILLIGRAM
     Route: 048
     Dates: start: 20200324, end: 20200402
  21. TAFASITAMAB [Suspect]
     Active Substance: TAFASITAMAB
     Indication: DIFFUSE LARGE B-CELL LYMPHOMA
     Dosage: 12 MILLIGRAM/KILOGRAM
     Route: 041
     Dates: start: 20200116, end: 20200116
  22. TAFASITAMAB [Suspect]
     Active Substance: TAFASITAMAB
     Dosage: 12 MILLIGRAM/KILOGRAM
     Route: 041
     Dates: start: 20200303, end: 20200303
  23. TAFASITAMAB [Suspect]
     Active Substance: TAFASITAMAB
     Dosage: 12 MILLIGRAM/KILOGRAM
     Route: 041
     Dates: start: 20200505, end: 20200505
  24. MOVICOL [Concomitant]
     Active Substance: POLYETHYLENE GLYCOL 3350\POTASSIUM CHLORIDE\SODIUM BICARBONATE\SODIUM CHLORIDE
     Indication: PRODUCT USED FOR UNKNOWN INDICATION
     Route: 065
     Dates: start: 20200103
  25. STEOVIT D [Concomitant]
     Indication: PRODUCT USED FOR UNKNOWN INDICATION
     Route: 065
     Dates: start: 20200105
  26. TAFASITAMAB [Suspect]
     Active Substance: TAFASITAMAB
     Dosage: 12 MILLIGRAM/KILOGRAM
     Route: 041
     Dates: start: 20200526, end: 20200526
  27. LENALIDOMIDE [Suspect]
     Active Substance: LENALIDOMIDE
     Dosage: 20 MILLIGRAM
     Route: 048
     Dates: start: 20200512, end: 20200521
  28. TAFASITAMAB [Suspect]
     Active Substance: TAFASITAMAB
     Dosage: 12 MILLIGRAM/KILOGRAM
     Route: 041
     Dates: start: 20200218, end: 20200218
  29. TAFASITAMAB [Suspect]
     Active Substance: TAFASITAMAB
     Dosage: 12 MILLIGRAM/KILOGRAM
     Route: 041
     Dates: start: 20200225, end: 20200225
  30. TAFASITAMAB [Suspect]
     Active Substance: TAFASITAMAB
     Dosage: 12 MILLIGRAM/KILOGRAM
     Route: 041
     Dates: start: 20200317, end: 20200317
  31. TAFASITAMAB [Suspect]
     Active Substance: TAFASITAMAB
     Dosage: 12 MILLIGRAM/KILOGRAM
     Route: 041
     Dates: start: 20200407, end: 20200407
  32. TAFASITAMAB [Suspect]
     Active Substance: TAFASITAMAB
     Dosage: 12 MILLIGRAM/KILOGRAM
     Route: 041
     Dates: start: 20200428, end: 20200428
  33. TAFASITAMAB [Suspect]
     Active Substance: TAFASITAMAB
     Dosage: 12 MILLIGRAM/KILOGRAM
     Route: 041
     Dates: start: 20200512, end: 20200512
  34. TAFASITAMAB [Suspect]
     Active Substance: TAFASITAMAB
     Dosage: 12 MILLIGRAM/KILOGRAM
     Route: 041
     Dates: start: 20200519, end: 20200519
  35. CLEXANE [Concomitant]
     Active Substance: ENOXAPARIN SODIUM
     Indication: PRODUCT USED FOR UNKNOWN INDICATION
     Route: 065
     Dates: start: 20200111

REACTIONS (1)
  - Lithiasis [Recovered/Resolved]

NARRATIVE: CASE EVENT DATE: 20200825
